FAERS Safety Report 21623103 (Version 5)
Quarter: 2024Q1

REPORT INFORMATION
  Report Type: Spontaneous
  Country: CA (occurrence: CA)
  Receive Date: 20221121
  Receipt Date: 20240207
  Transmission Date: 20240410
  Serious: Yes (Hospitalization, Other)
  Sender: FDA-Public Use
  Company Number: CA-PFIZER INC-202201057472

PATIENT
  Age: 72 Year
  Sex: Female

DRUGS (2)
  1. XELJANZ XR [Suspect]
     Active Substance: TOFACITINIB CITRATE
     Indication: Rheumatoid arthritis
     Dosage: 11 MG, 1X/DAY
     Route: 048
     Dates: start: 20220415, end: 20230908
  2. METHOTREXATE [Concomitant]
     Active Substance: METHOTREXATE
     Dosage: 1 DF, DOSAGE NOT AVAILABLE
     Route: 065

REACTIONS (9)
  - Lung disorder [Not Recovered/Not Resolved]
  - Spinal fracture [Not Recovered/Not Resolved]
  - Treatment failure [Unknown]
  - Arthralgia [Not Recovered/Not Resolved]
  - C-reactive protein increased [Not Recovered/Not Resolved]
  - Red blood cell sedimentation rate increased [Not Recovered/Not Resolved]
  - Condition aggravated [Not Recovered/Not Resolved]
  - Osteoporosis [Not Recovered/Not Resolved]
  - Disease risk factor [Not Recovered/Not Resolved]

NARRATIVE: CASE EVENT DATE: 20220101
